FAERS Safety Report 22305222 (Version 1)
Quarter: 2023Q2

REPORT INFORMATION
  Report Type: Spontaneous
  Country: US (occurrence: US)
  Receive Date: 20230510
  Receipt Date: 20230510
  Transmission Date: 20230722
  Serious: No
  Sender: FDA-Public Use
  Company Number: US-PFIZER INC-202300180141

PATIENT
  Age: 74 Year
  Sex: Female
  Weight: 55.79 kg

DRUGS (2)
  1. PAXLOVID [Suspect]
     Active Substance: NIRMATRELVIR\RITONAVIR
     Indication: COVID-19 treatment
     Dosage: [PF-07321332 300 MG]/[RITONAVIR 100 MG]; 2X/DAY
     Dates: start: 20230428, end: 20230502
  2. SYMBICORT [Concomitant]
     Active Substance: BUDESONIDE\FORMOTEROL FUMARATE DIHYDRATE
     Indication: Asthma
     Dosage: AT MORNING AND NIGHT FOR A COUPLE OF YEARS  160MCG/4.5MCG 2X/DAY
     Route: 055

REACTIONS (3)
  - Therapeutic product effect incomplete [Unknown]
  - Cough [Unknown]
  - Weight decreased [Unknown]

NARRATIVE: CASE EVENT DATE: 20230503
